FAERS Safety Report 4955137-5 (Version None)
Quarter: 2006Q1

REPORT INFORMATION
  Report Type: 
  Country: None (occurrence: None)
  Receive Date: 20060322
  Receipt Date: 20060309
  Transmission Date: 20060701
  Serious: Yes (Other)
  Sender: FDA-Public Use
  Company Number: 2006034452

PATIENT
  Sex: Male
  Weight: 74.8435 kg

DRUGS (2)
  1. VIAGRA [Suspect]
     Indication: ERECTILE DYSFUNCTION
     Dosage: 100 MG (100 MG, AS NECESSARY), ORAL
     Route: 048
  2. CAVERJECT [Suspect]
     Indication: ERECTILE DYSFUNCTION
     Dosage: AS NECESSARY, PARENTERAL
     Route: 051
     Dates: start: 20050101

REACTIONS (3)
  - DRUG INEFFECTIVE [None]
  - NERVE INJURY [None]
  - PROSTATE CANCER [None]
